FAERS Safety Report 9365466 (Version 2)
Quarter: 2013Q3

REPORT INFORMATION
  Report Type: Spontaneous
  Country: CA (occurrence: CA)
  Receive Date: 20130625
  Receipt Date: 20130724
  Transmission Date: 20140515
  Serious: Yes (Hospitalization)
  Sender: FDA-Public Use
  Company Number: CA-ROCHE-1237234

PATIENT
  Age: 22 Year
  Sex: Male
  Weight: 79.9 kg

DRUGS (3)
  1. ACCUTANE [Suspect]
     Indication: ACNE
     Route: 048
     Dates: start: 20081118, end: 20090205
  2. ACCUTANE [Suspect]
     Route: 048
     Dates: start: 20091102, end: 20091109
  3. ACCUTANE [Suspect]
     Route: 048
     Dates: start: 20091112, end: 20091114

REACTIONS (10)
  - Diarrhoea haemorrhagic [Recovered/Resolved]
  - Inflammatory bowel disease [Recovered/Resolved]
  - Ulcer [Recovered/Resolved]
  - Weight decreased [Recovered/Resolved]
  - Abdominal pain [Not Recovered/Not Resolved]
  - Colitis ulcerative [Not Recovered/Not Resolved]
  - Diarrhoea [Not Recovered/Not Resolved]
  - Rectal haemorrhage [Not Recovered/Not Resolved]
  - Condition aggravated [Not Recovered/Not Resolved]
  - Intestinal perforation [Not Recovered/Not Resolved]
